FAERS Safety Report 7176907-1 (Version None)
Quarter: 2010Q4

REPORT INFORMATION
  Report Type: 
  Country: None (occurrence: None)
  Receive Date: 20101215
  Receipt Date: 20101215
  Transmission Date: 20110411
  Serious: No
  Sender: FDA-Public Use
  Company Number: None

PATIENT
  Sex: Female
  Weight: 72.2 kg

DRUGS (4)
  1. PIXANTRONE DIMALEATE [Suspect]
     Dosage: 317 MG
     Dates: end: 20101111
  2. EFFEXOR [Concomitant]
  3. FENTANYL [Concomitant]
  4. OXYCODONE [Concomitant]

REACTIONS (8)
  - DIZZINESS [None]
  - DYSPNOEA [None]
  - FATIGUE [None]
  - HYPOTENSION [None]
  - MALIGNANT NEOPLASM PROGRESSION [None]
  - METASTASES TO LIVER [None]
  - METASTASES TO LUNG [None]
  - PAIN [None]
